FAERS Safety Report 21264677 (Version 1)
Quarter: 2022Q3

REPORT INFORMATION
  Report Type: Spontaneous
  Country: US (occurrence: None)
  Receive Date: 20220827
  Receipt Date: 20220827
  Transmission Date: 20221027
  Serious: Yes (Hospitalization)
  Sender: FDA-Public Use
  Company Number: None

PATIENT
  Age: 80 Year
  Sex: Male

DRUGS (1)
  1. APIXABAN [Suspect]
     Active Substance: APIXABAN
     Indication: Atrial fibrillation
     Dosage: BID?
     Dates: start: 20210603

REACTIONS (13)
  - Gastric haemorrhage [None]
  - Anaemia [None]
  - Colitis ischaemic [None]
  - Septic shock [None]
  - Rotavirus infection [None]
  - Escherichia infection [None]
  - Diarrhoea [None]
  - Fall [None]
  - Acute kidney injury [None]
  - Encephalopathy [None]
  - Respiratory failure [None]
  - Chronic obstructive pulmonary disease [None]
  - Pneumonia [None]

NARRATIVE: CASE EVENT DATE: 20220301
